FAERS Safety Report 4856365-X (Version None)
Quarter: 2005Q4

REPORT INFORMATION
  Report Type: 
  Country: None (occurrence: None)
  Receive Date: 20051219
  Receipt Date: 20050210
  Transmission Date: 20060501
  Serious: No
  Sender: FDA-Public Use
  Company Number: US-GLAXOSMITHKLINE-A0545037A

PATIENT

DRUGS (1)
  1. NICODERM CQ [Suspect]
     Dates: start: 20050204

REACTIONS (2)
  - DIZZINESS [None]
  - NAUSEA [None]
